FAERS Safety Report 10814959 (Version 1)
Quarter: 2015Q1

REPORT INFORMATION
  Report Type: Report from Study
  Country: SA (occurrence: SA)
  Receive Date: 20150218
  Receipt Date: 20150218
  Transmission Date: 20150721
  Serious: Yes (Other)
  Sender: FDA-Public Use
  Company Number: SA-SA-2015SA019482

PATIENT
  Age: 73 Year
  Sex: Female

DRUGS (5)
  1. DOXORUBICIN [Suspect]
     Active Substance: DOXORUBICIN
     Indication: ACUTE MYELOID LEUKAEMIA
     Dosage: 60 MG ON DAY1; 2 COURSES Q4 WEEKLY
     Route: 065
  2. ALLOPURINOL. [Concomitant]
     Active Substance: ALLOPURINOL
  3. ARA-C [Suspect]
     Active Substance: CYTARABINE
     Indication: ACUTE MYELOID LEUKAEMIA
     Dosage: ARA-C 20 MG/M2 SC DAY 1-14; 2 COURSES, Q4 WEEKLY
     Route: 058
  4. GRANULOCYTE COLONY STIMULATING FACTOR [Concomitant]
     Active Substance: GRANULOCYTE COLONY-STIMULATING FACTOR NOS
  5. CLOFARABINE [Suspect]
     Active Substance: CLOFARABINE
     Indication: ACUTE MYELOID LEUKAEMIA
     Dosage: CLOFARABINE 30 MG/M2 IV DAY 1-5; 2 COURSES Q4 WEEKLY
     Route: 042

REACTIONS (9)
  - Hepatic enzyme increased [Unknown]
  - Cardiac failure [Unknown]
  - Rash [Unknown]
  - Mucosal inflammation [Unknown]
  - Neutropenia [Unknown]
  - Bacterial infection [Unknown]
  - Thrombocytopenia [Unknown]
  - Sepsis [Unknown]
  - Vomiting [Unknown]
